FAERS Safety Report 4500786-1 (Version None)
Quarter: 2004Q4

REPORT INFORMATION
  Report Type: 
  Country: None (occurrence: None)
  Receive Date: 20041112
  Receipt Date: 20041112
  Transmission Date: 20050328
  Serious: Yes (Hospitalization)
  Sender: FDA-Public Use
  Company Number: None

PATIENT
  Age: 66 Year
  Sex: Female
  Weight: 104.1459 kg

DRUGS (10)
  1. GLIPIZIDE [Suspect]
     Indication: HYPERGLYCAEMIA
     Dosage: 5 MG PO BID
     Route: 048
     Dates: start: 20040802, end: 20040814
  2. COUMADIN [Concomitant]
  3. DERMADEX [Concomitant]
  4. SLIDING SCALE INSULIN [Concomitant]
  5. MEGACE [Concomitant]
  6. KCL TAB [Concomitant]
  7. ZOMIG [Concomitant]
  8. ZOLOFT [Concomitant]
  9. HYDRALAZINE [Concomitant]
  10. GLIPIZIDE [Concomitant]

REACTIONS (1)
  - HYPOGLYCAEMIA [None]
